FAERS Safety Report 5903062-5 (Version None)
Quarter: 2008Q3

REPORT INFORMATION
  Report Type: 
  Country: None (occurrence: None)
  Receive Date: 20080930
  Receipt Date: 20080919
  Transmission Date: 20090109
  Serious: Yes (Life-Threatening, Hospitalization)
  Sender: FDA-Public Use
  Company Number: US-ROCHE-584985

PATIENT
  Sex: Female
  Weight: 84.8 kg

DRUGS (3)
  1. ISOTRETINOIN [Suspect]
     Indication: DRUG USE FOR UNKNOWN INDICATION
     Dosage: DATE OF LAST DOSE PRIOR TO THE EVENT WAS REPORTED AS 1987.
     Route: 065
     Dates: end: 19870101
  2. SOTRET [Suspect]
     Indication: ACNE
     Route: 048
     Dates: start: 20060202, end: 20060313
  3. LOVASTATIN [Concomitant]

REACTIONS (2)
  - COMA [None]
  - ISCHAEMIC STROKE [None]
